FAERS Safety Report 9888165 (Version 1)
Quarter: 2014Q1

REPORT INFORMATION
  Report Type: Spontaneous
  Country: US (occurrence: None)
  Receive Date: 20140207
  Receipt Date: 20140207
  Transmission Date: 20141002
  Serious: Yes (Death)
  Sender: FDA-Public Use
  Company Number: SYM-2014-16043

PATIENT
  Age: 42 Year
  Sex: Male

DRUGS (3)
  1. SALICYLATE (SALICYLATES NOS) [Suspect]
     Indication: PRODUCT USED FOR UNKNOWN INDICATION
     Route: 048
  2. ACETAMINOPHEN (PARACETAMOL) [Suspect]
     Route: 048
  3. PROMETHAZINE (PROMETHAZINE) (PROMETHAZINE) [Suspect]
     Route: 048

REACTIONS (4)
  - Completed suicide [None]
  - Wrong drug administered [None]
  - Poisoning [None]
  - Exposure via ingestion [None]
